FAERS Safety Report 7152373-7 (Version None)
Quarter: 2010Q4

REPORT INFORMATION
  Report Type: 
  Country: None (occurrence: None)
  Receive Date: 20101213
  Receipt Date: 20101201
  Transmission Date: 20110411
  Serious: Yes (Hospitalization)
  Sender: FDA-Public Use
  Company Number: JP-PFIZER INC-2010169344

PATIENT
  Age: 80 Year
  Sex: Female

DRUGS (2)
  1. CELECOXIB [Suspect]
     Dosage: UNK
     Route: 048
  2. RECALBON [Suspect]
     Indication: OSTEOPOROSIS
     Dosage: 1 MG, UID/QD
     Route: 048
     Dates: start: 20090701

REACTIONS (1)
  - OSTEONECROSIS OF JAW [None]
